FAERS Safety Report 6169678-9 (Version None)
Quarter: 2009Q2

REPORT INFORMATION
  Report Type: 
  Country: None (occurrence: None)
  Receive Date: 20090424
  Receipt Date: 20090207
  Transmission Date: 20091009
  Serious: No
  Sender: FDA-Public Use
  Company Number: ALL1-2009-00331

PATIENT
  Age: 11 Year
  Sex: Male
  Weight: 31.7 kg

DRUGS (1)
  1. VYVANSE [Suspect]
     Indication: ATTENTION DEFICIT/HYPERACTIVITY DISORDER
     Dosage: 20 MG, 1X/DAY:QD, ORAL
     Route: 048
     Dates: start: 20090101

REACTIONS (4)
  - AFFECT LABILITY [None]
  - AGGRESSION [None]
  - IMPULSIVE BEHAVIOUR [None]
  - PARANOIA [None]
